FAERS Safety Report 19661363 (Version 1)
Quarter: 2021Q3

REPORT INFORMATION
  Report Type: Spontaneous
  Country: US (occurrence: US)
  Receive Date: 20210805
  Receipt Date: 20210805
  Transmission Date: 20211014
  Serious: Yes (Hospitalization, Other)
  Sender: FDA-Public Use
  Company Number: US-SLATE RUN PHARMACEUTICALS-21US000608

PATIENT

DRUGS (5)
  1. VORICONAZOLE. [Suspect]
     Active Substance: VORICONAZOLE
     Indication: ANTIFUNGAL PROPHYLAXIS
     Dosage: UNK
  2. VANCOMYCIN HYDROCHLORIDE USP [Suspect]
     Active Substance: VANCOMYCIN HYDROCHLORIDE
     Indication: PNEUMONIA
     Dosage: UNK
  3. AZITHROMYCIN USP [Suspect]
     Active Substance: AZITHROMYCIN
     Indication: ANTIFUNGAL PROPHYLAXIS
     Dosage: UNK
  4. MICAFUNGIN. [Concomitant]
     Active Substance: MICAFUNGIN SODIUM
     Indication: ANTIFUNGAL PROPHYLAXIS
     Route: 042
  5. VALACYCLOVIR [Concomitant]
     Active Substance: VALACYCLOVIR HYDROCHLORIDE
     Indication: ANTIVIRAL PROPHYLAXIS
     Dosage: UNK

REACTIONS (7)
  - Pancytopenia [Unknown]
  - Tachycardia [Unknown]
  - Rhinovirus infection [Unknown]
  - Pneumonia [Unknown]
  - Tachypnoea [Unknown]
  - Respiratory failure [Unknown]
  - Enterovirus infection [Unknown]
